FAERS Safety Report 9402781 (Version 1)
Quarter: 2013Q3

REPORT INFORMATION
  Report Type: Spontaneous
  Country: US (occurrence: None)
  Receive Date: 20130715
  Receipt Date: 20130715
  Transmission Date: 20140515
  Serious: Yes (Life-Threatening, Hospitalization)
  Sender: FDA-Public Use
  Company Number: None

PATIENT
  Age: 21 Year
  Sex: Female
  Weight: 61.24 kg

DRUGS (1)
  1. PLAN B [Suspect]
     Dosage: ONE TABLET
     Route: 048
     Dates: start: 20120623, end: 20120623

REACTIONS (6)
  - Haemorrhage [None]
  - Nausea [None]
  - Hormone level abnormal [None]
  - Pregnancy on contraceptive [None]
  - Ectopic pregnancy [None]
  - Fallopian tube perforation [None]
